FAERS Safety Report 12200579 (Version 1)
Quarter: 2016Q1

REPORT INFORMATION
  Report Type: Spontaneous
  Country: US (occurrence: US)
  Receive Date: 20160322
  Receipt Date: 20160322
  Transmission Date: 20160526
  Serious: Yes (Hospitalization, Other)
  Sender: FDA-Public Use
  Company Number: US-TEVA-643725USA

PATIENT
  Age: 71 Year
  Sex: Male

DRUGS (5)
  1. LISINOPRIL. [Suspect]
     Active Substance: LISINOPRIL
     Route: 065
  2. OXYBUTYNIN [Suspect]
     Active Substance: OXYBUTYNIN
     Route: 065
  3. DILANTIN [Suspect]
     Active Substance: PHENYTOIN
     Indication: SEIZURE
     Dosage: 500 MILLIGRAM DAILY; 200MG IN THE MORNING, 300MG IN THE EVENING
     Route: 048
  4. SIMVASTATIN. [Suspect]
     Active Substance: SIMVASTATIN
     Route: 065
  5. ZOLOFT [Suspect]
     Active Substance: SERTRALINE HYDROCHLORIDE
     Route: 065

REACTIONS (12)
  - Investigation abnormal [Unknown]
  - Generalised tonic-clonic seizure [Recovered/Resolved]
  - Agitation [Unknown]
  - Confusional state [Unknown]
  - Dysarthria [Unknown]
  - Musculoskeletal pain [Unknown]
  - Generalised tonic-clonic seizure [Recovered/Resolved]
  - Fall [Unknown]
  - Infusion site cellulitis [Unknown]
  - Seizure [Recovered/Resolved]
  - Pneumonia aspiration [Unknown]
  - Respiratory failure [Unknown]

NARRATIVE: CASE EVENT DATE: 201510
